FAERS Safety Report 9272241 (Version 1)
Quarter: 2013Q2

REPORT INFORMATION
  Report Type: Spontaneous
  Country: US (occurrence: US)
  Receive Date: 20130506
  Receipt Date: 20130506
  Transmission Date: 20140414
  Serious: No
  Sender: FDA-Public Use
  Company Number: US-ASTRAZENECA-2013SE18451

PATIENT
  Age: 70 Year
  Sex: 0

DRUGS (4)
  1. PRILOSEC OTC, WILDBERRY FLAVOR [Suspect]
     Route: 048
     Dates: start: 20130228, end: 20130228
  2. PRILOSEC OTC, WILDBERRY FLAVOR [Suspect]
     Route: 048
     Dates: start: 20130312, end: 20130312
  3. CARDIOVASCULAR SYSTEM DRUGS [Concomitant]
  4. CHOLESTEROL- AND TRIGLYCERIDE REDUCERS [Concomitant]

REACTIONS (3)
  - Swelling face [Recovered/Resolved]
  - Hypoaesthesia [Recovered/Resolved]
  - Intentional drug misuse [Unknown]
